FAERS Safety Report 14769894 (Version 3)
Quarter: 2018Q2

REPORT INFORMATION
  Report Type: Spontaneous
  Country: FR (occurrence: FR)
  Receive Date: 20180417
  Receipt Date: 20180502
  Transmission Date: 20180711
  Serious: Yes (Other)
  Sender: FDA-Public Use
  Company Number: FR-BAYER-2018-070806

PATIENT
  Age: 34 Year
  Sex: Female
  Weight: 82 kg

DRUGS (4)
  1. MIRENA [Suspect]
     Active Substance: LEVONORGESTREL
     Indication: CONTRACEPTION
  2. PRONTALGINE [Concomitant]
     Active Substance: ACETAMINOPHEN\AMOBARBITAL\CAFFEINE\CODEINE PHOSPHATE
  3. MIRENA [Suspect]
     Active Substance: LEVONORGESTREL
     Indication: CONTRACEPTION
     Dosage: 20 MCG/24HR, CONT
     Route: 015
     Dates: start: 20160523
  4. SECTRAL [Concomitant]
     Active Substance: ACEBUTOLOL HYDROCHLORIDE

REACTIONS (8)
  - Depression [Not Recovered/Not Resolved]
  - Alopecia [Not Recovered/Not Resolved]
  - Loss of libido [Not Recovered/Not Resolved]
  - Menorrhagia [Not Recovered/Not Resolved]
  - Migraine [Not Recovered/Not Resolved]
  - Anxiety [Not Recovered/Not Resolved]
  - Breast neoplasm [Not Recovered/Not Resolved]
  - Paraesthesia [Not Recovered/Not Resolved]

NARRATIVE: CASE EVENT DATE: 201607
